FAERS Safety Report 19689342 (Version 1)
Quarter: 2021Q3

REPORT INFORMATION
  Report Type: Spontaneous
  Country: CN (occurrence: CN)
  Receive Date: 20210812
  Receipt Date: 20210812
  Transmission Date: 20211014
  Serious: Yes (Other)
  Sender: FDA-Public Use
  Company Number: CN-BAXTER-2021BAX023852

PATIENT
  Age: 54 Year
  Sex: Male
  Weight: 69 kg

DRUGS (12)
  1. ENDOXAN [Suspect]
     Active Substance: CYCLOPHOSPHAMIDE
     Indication: PLASMA CELL MYELOMA
     Dosage: CYCLOPHOSPHAMIDE FOR INJECTION 500 MG + 0.9% SODIUM CHLORIDE INJECTION 250 ML
     Route: 041
     Dates: start: 20210708, end: 20210711
  2. ENDOXAN [Suspect]
     Active Substance: CYCLOPHOSPHAMIDE
     Dosage: DOSE RE?INTRODUCED; CYCLOPHOSPHAMIDE FOR INJECTION + 0.9% SODIUM CHLORIDE INJECTION
     Route: 041
  3. 0.9% SODIUM CHLORIDE INJECTION [Suspect]
     Active Substance: SODIUM CHLORIDE
     Indication: PLASMA CELL MYELOMA
     Dosage: ETOPOSIDE INJECTION 0.07 G + 0.9% SODIUM CHLORIDE INJECTION 250 ML
     Route: 041
     Dates: start: 20210708, end: 20210711
  4. CISPLATIN. [Suspect]
     Active Substance: CISPLATIN
     Indication: PLASMA CELL MYELOMA
     Dosage: CISPLATIN INJECTION (LYOPHILIZED) 15 MG + 0.9% SODIUM CHLORIDE INJECTION 500 ML
     Route: 041
     Dates: start: 20210708, end: 20210711
  5. 0.9% SODIUM CHLORIDE INJECTION [Suspect]
     Active Substance: SODIUM CHLORIDE
     Dosage: CYCLOPHOSPHAMIDE FOR INJECTION 500 MG + 0.9% SODIUM CHLORIDE INJECTION 250 ML
     Route: 041
     Dates: start: 20210708, end: 20210711
  6. 0.9% SODIUM CHLORIDE INJECTION [Suspect]
     Active Substance: SODIUM CHLORIDE
     Dosage: DOSE RE?INTRODUCED; CYCLOPHOSPHAMIDE FOR INJECTION + 0.9% SODIUM CHLORIDE INJECTION
     Route: 041
  7. CISPLATIN. [Suspect]
     Active Substance: CISPLATIN
     Dosage: DOSE RE?INTRODUCED; CISPLATIN INJECTION (LYOPHILIZED) + 0.9% SODIUM CHLORIDE INJECTION
     Route: 041
  8. ETOPOSIDE. [Suspect]
     Active Substance: ETOPOSIDE
     Indication: PLASMA CELL MYELOMA
     Dosage: ETOPOSIDE INJECTION 0.07 G + 0.9% SODIUM CHLORIDE INJECTION 250 ML
     Route: 041
     Dates: start: 20210708, end: 20210711
  9. 0.9% SODIUM CHLORIDE INJECTION [Suspect]
     Active Substance: SODIUM CHLORIDE
     Dosage: CISPLATIN INJECTION (LYOPHILIZED) 15 MG + 0.9% SODIUM CHLORIDE INJECTION 500 ML
     Route: 041
     Dates: start: 20210708, end: 20210711
  10. 0.9% SODIUM CHLORIDE INJECTION [Suspect]
     Active Substance: SODIUM CHLORIDE
     Dosage: DOSE REINTRODUCED; CISPLATIN INJECTION (LYOPHILIZED) + 0.9% SODIUM CHLORIDE INJECTION
     Route: 041
  11. 0.9% SODIUM CHLORIDE INJECTION [Suspect]
     Active Substance: SODIUM CHLORIDE
     Dosage: DOSE RE?INTRODUCED; ETOPOSIDE INJECTION + 0.9% SODIUM CHLORIDE INJECTION
     Route: 041
  12. ETOPOSIDE. [Suspect]
     Active Substance: ETOPOSIDE
     Dosage: DOSE RE?INTRODUCED; ETOPOSIDE INJECTION + 0.9% SODIUM CHLORIDE INJECTION
     Route: 041

REACTIONS (2)
  - Myelosuppression [Recovering/Resolving]
  - Thrombocytopenia [Recovering/Resolving]

NARRATIVE: CASE EVENT DATE: 20210725
